FAERS Safety Report 8515960-7 (Version None)
Quarter: 2012Q3

REPORT INFORMATION
  Report Type: 
  Country: None (occurrence: None)
  Receive Date: 20120717
  Receipt Date: 20120709
  Transmission Date: 20120928
  Serious: Yes (Hospitalization)
  Sender: FDA-Public Use
  Company Number: GB-TEVA-347541ISR

PATIENT
  Age: 56 Year
  Sex: Female

DRUGS (4)
  1. FOLIC ACID, VITAMIN B12 ANALOGUES [Concomitant]
     Route: 065
  2. LEFLUNOMIDE [Suspect]
     Dosage: 20 MILLIGRAM;
     Route: 065
  3. PREDNISOLONE [Suspect]
     Dosage: 5 MILLIGRAM;
     Route: 065
  4. FOSAMAX [Suspect]
     Indication: OSTEOPOROSIS
     Route: 048

REACTIONS (1)
  - OSTEONECROSIS OF JAW [None]
